FAERS Safety Report 9682068 (Version 2)
Quarter: 2013Q4

REPORT INFORMATION
  Report Type: Spontaneous
  Country: US (occurrence: US)
  Receive Date: 20131111
  Receipt Date: 20131204
  Transmission Date: 20140711
  Serious: No
  Sender: FDA-Public Use
  Company Number: US-TEVA-443604USA

PATIENT
  Sex: Male

DRUGS (1)
  1. PROAIR HFA [Suspect]
     Indication: BRONCHITIS

REACTIONS (3)
  - Product taste abnormal [Recovered/Resolved]
  - Off label use [Unknown]
  - Device failure [Recovered/Resolved]
